FAERS Safety Report 20869137 (Version 2)
Quarter: 2022Q2

REPORT INFORMATION
  Report Type: Spontaneous
  Country: US (occurrence: US)
  Receive Date: 20220524
  Receipt Date: 20220529
  Transmission Date: 20220721
  Serious: Yes (Hospitalization, Other)
  Sender: FDA-Public Use
  Company Number: US-009507513-2205USA005800

PATIENT
  Age: 54 Year
  Sex: Male

DRUGS (22)
  1. JANUVIA [Suspect]
     Active Substance: SITAGLIPTIN PHOSPHATE
     Indication: Diabetes mellitus
     Dosage: 100 MILLIGRAM, DAILY (QD)
     Route: 048
     Dates: start: 20210619
  2. METFORMIN [Suspect]
     Active Substance: METFORMIN HYDROCHLORIDE
     Dosage: 500 MILLIGRAM, TWICE A DAY
     Dates: start: 20210619
  3. CHOLECALCIFEROL [Concomitant]
     Active Substance: CHOLECALCIFEROL
  4. COPAXONE [Concomitant]
     Active Substance: GLATIRAMER ACETATE
  5. POTASSIUM CHLORIDE [Concomitant]
     Active Substance: POTASSIUM CHLORIDE
     Dosage: 10 MILLIEQUIVALENT
  6. BACLOFEN [Concomitant]
     Active Substance: BACLOFEN
     Dosage: 40 MILLIGRAM, A DAY (QD)
  7. ASPIRIN [Concomitant]
     Active Substance: ASPIRIN
     Dosage: 81 MILLIGRAM, A DAY (QD)
  8. PERCOCET [Concomitant]
     Active Substance: ACETAMINOPHEN\OXYCODONE HYDROCHLORIDE
     Dosage: 5/325 ONCE PER DAY (QD)
  9. IBUPROFEN [Concomitant]
     Active Substance: IBUPROFEN
     Dosage: 800 MILLIGRAM
  10. VENTOLIN RESPIRATOR [Concomitant]
  11. GUAIFENESIN;PSEUDOEPHEDRINE [Concomitant]
  12. EPINEPHRINE [Concomitant]
     Active Substance: EPINEPHRINE
  13. ADVAIR HFA [Concomitant]
     Active Substance: FLUTICASONE PROPIONATE\SALMETEROL XINAFOATE
     Dosage: 250/50 MCG
  14. NITROGLYCERIN [Concomitant]
     Active Substance: NITROGLYCERIN
     Dosage: 0.4 (UNITS NOT REPORTED) SUBLINGUAL AS NEEDED
     Route: 060
  15. PRAVASTATIN [Concomitant]
     Active Substance: PRAVASTATIN
     Dosage: 40 MILLIGRAM, A DAY (QD)
  16. CLONAZEPAM [Concomitant]
     Active Substance: CLONAZEPAM
     Dosage: 3 MG IN AM AND 3 MG IN EVENING
  17. LOSARTAN [Concomitant]
     Active Substance: LOSARTAN
     Dosage: 100 MILLIGRAM EVERY MORNING (QAM)
  18. CHLORTHALIDONE [Concomitant]
     Active Substance: CHLORTHALIDONE
     Dosage: 25 MILLIGRAM EVERY MORNING (QAM)
  19. CEFIXIME [Concomitant]
     Active Substance: CEFIXIME
     Dosage: 10 MG TAB THREE TIMES DAILY
  20. NYSTATIN [Concomitant]
     Active Substance: NYSTATIN
     Dosage: AS NEDDED
  21. OMEPRAZOLE [Concomitant]
     Active Substance: OMEPRAZOLE
     Dosage: 20 MILLIGRAM, EVERY MORNING (QAM)
  22. NOVOLOG [Concomitant]
     Active Substance: INSULIN ASPART
     Dosage: INTERMITTENTLY (NOT CURRENTLY TAKING; TAKES ONLY WHEN USING STEROIDS)

REACTIONS (8)
  - Sepsis [Unknown]
  - Acute cardiac event [Unknown]
  - Coronary artery occlusion [Unknown]
  - Folliculitis [Not Recovered/Not Resolved]
  - Pustule [Not Recovered/Not Resolved]
  - Acne cystic [Not Recovered/Not Resolved]
  - Stress [Unknown]
  - Anxiety [Unknown]

NARRATIVE: CASE EVENT DATE: 20210101
